FAERS Safety Report 10163767 (Version 2)
Quarter: 2015Q1

REPORT INFORMATION
  Report Type: Report from Study
  Country: US (occurrence: US)
  Receive Date: 20140509
  Receipt Date: 20150312
  Transmission Date: 20150720
  Serious: Yes (Other)
  Sender: FDA-Public Use
  Company Number: US-GILEAD-2014-0102051

PATIENT
  Age: 53 Year
  Sex: Male

DRUGS (2)
  1. AMBRISENTAN [Suspect]
     Active Substance: AMBRISENTAN
     Indication: PULMONARY ARTERIAL HYPERTENSION
     Dosage: 10 MG, QD
     Route: 065
     Dates: start: 20131218
  2. WARFARIN [Concomitant]
     Active Substance: WARFARIN

REACTIONS (1)
  - Colon operation [Unknown]

NARRATIVE: CASE EVENT DATE: 20140430
